FAERS Safety Report 4845426-7 (Version None)
Quarter: 2005Q4

REPORT INFORMATION
  Report Type: 
  Country: None (occurrence: None)
  Receive Date: 20051129
  Receipt Date: 20051116
  Transmission Date: 20060501
  Serious: Yes (Hospitalization)
  Sender: FDA-Public Use
  Company Number: 2005158117

PATIENT
  Age: 80 Year
  Sex: Female
  Weight: 70 kg

DRUGS (5)
  1. NEURONTIN [Suspect]
     Indication: LESION OF SCIATIC NERVE
     Dosage: 300 MG (300 MG, 1 IN 1 D), ORAL
     Route: 048
     Dates: end: 20051011
  2. DURAGESIC-100 [Suspect]
     Indication: LESION OF SCIATIC NERVE
     Dosage: 8 MG (8 MG, 1 IN 1 D), TOPICAL
     Route: 061
     Dates: start: 20040301
  3. ACETYLSALICYLATE LYSINE (ACETYLSALICYLATE LYSINE) [Concomitant]
  4. PAROXETINE (PAROXETINE) [Concomitant]
  5. ZOLPIDEM TARTRATE [Concomitant]

REACTIONS (9)
  - AGITATION [None]
  - CONFUSIONAL STATE [None]
  - DIFFICULTY IN WALKING [None]
  - DISORIENTATION [None]
  - MALAISE [None]
  - OVERDOSE [None]
  - OXYGEN SATURATION DECREASED [None]
  - PAIN IN EXTREMITY [None]
  - SOMNOLENCE [None]
